FAERS Safety Report 18353446 (Version 1)
Quarter: 2020Q4

REPORT INFORMATION
  Report Type: Spontaneous
  Country: GB (occurrence: GB)
  Receive Date: 20201006
  Receipt Date: 20201006
  Transmission Date: 20210114
  Serious: Yes (Other)
  Sender: FDA-Public Use
  Company Number: GB-ALLERGAN-2037579US

PATIENT
  Sex: Female
  Weight: 63.5 kg

DRUGS (3)
  1. PRED FORTE [Suspect]
     Active Substance: PREDNISOLONE ACETATE
     Indication: EYE INFLAMMATION
     Dosage: 1 GTT, Q2HR
     Route: 047
     Dates: start: 20200904, end: 20200911
  2. PRED FORTE [Suspect]
     Active Substance: PREDNISOLONE ACETATE
     Dosage: 1 GTT, Q1HR
     Route: 047
     Dates: start: 20200901, end: 20200904
  3. FML [Concomitant]
     Active Substance: FLUOROMETHOLONE
     Dosage: FOR OTHER EYE

REACTIONS (4)
  - Anxiety [Recovering/Resolving]
  - Hypoaesthesia [Recovering/Resolving]
  - Fatigue [Recovering/Resolving]
  - Depressed mood [Recovering/Resolving]

NARRATIVE: CASE EVENT DATE: 20200902
